FAERS Safety Report 24629866 (Version 1)
Quarter: 2024Q4

REPORT INFORMATION
  Report Type: Spontaneous
  Country: CA (occurrence: CA)
  Receive Date: 20241118
  Receipt Date: 20241118
  Transmission Date: 20250115
  Serious: Yes (Hospitalization)
  Sender: ORGANON
  Company Number: CA-ORGANON-O2411CAN000750

PATIENT
  Age: 65 Year
  Sex: Female

DRUGS (23)
  1. REMERON [Suspect]
     Active Substance: MIRTAZAPINE
     Indication: Depression
     Dosage: UNK
     Route: 065
  2. APIXABAN [Suspect]
     Active Substance: APIXABAN
     Dosage: 5 MILLIGRAM, 2 EVERY 1 DAYS
     Route: 065
  3. BUPROPION [Suspect]
     Active Substance: BUPROPION
     Indication: Depression
     Dosage: 400 MILLIGRAM, 1 EVERY 1 DAYS
     Route: 065
  4. BUPROPION [Suspect]
     Active Substance: BUPROPION
     Dosage: 300 MILLIGRAM
     Route: 065
  5. CANNABIS SATIVA SUBSP. INDICA TOP [Suspect]
     Active Substance: CANNABIS SATIVA SUBSP. INDICA TOP
     Indication: Insomnia
     Dosage: UNK
     Route: 065
  6. CLOMIPRAMINE [Suspect]
     Active Substance: CLOMIPRAMINE
     Indication: Depression
     Dosage: UNK
     Route: 065
  7. DAYVIGO [Suspect]
     Active Substance: LEMBOREXANT
     Indication: Depression
     Dosage: 10 MILLIGRAM
     Route: 065
  8. ESCITALOPRAM [Suspect]
     Active Substance: ESCITALOPRAM OXALATE
     Indication: Depression
     Dosage: UNK
     Route: 065
  9. FLUOXETINE [Suspect]
     Active Substance: FLUOXETINE HYDROCHLORIDE
     Indication: Depression
     Dosage: UNK
     Route: 065
  10. FLUVOXAMINE [Suspect]
     Active Substance: FLUVOXAMINE
     Indication: Depression
     Dosage: UNK
     Route: 065
  11. GABAPENTIN [Suspect]
     Active Substance: GABAPENTIN
     Indication: Depression
     Dosage: UNK
     Route: 065
  12. LORAZEPAM [Suspect]
     Active Substance: LORAZEPAM
     Indication: Depression
     Dosage: UNK
     Route: 065
  13. LEVOMEPROMAZINE [Suspect]
     Active Substance: LEVOMEPROMAZINE
     Indication: Depression
     Dosage: UNK
     Route: 065
  14. PANTOPRAZOLE [Suspect]
     Active Substance: PANTOPRAZOLE
     Dosage: 40 MILLIGRAM, 1 EVERY 1 DAYS
     Route: 065
  15. PAROXETINE [Suspect]
     Active Substance: PAROXETINE
     Indication: Depression
     Dosage: UNK
     Route: 065
  16. PRAMIPEXOLE [Suspect]
     Active Substance: PRAMIPEXOLE\PRAMIPEXOLE DIHYDROCHLORIDE
     Indication: Depression
     Dosage: 0.25 MILLIGRAM, 2 EVERY 1 DAYS
     Route: 065
  17. QUETIAPINE [Suspect]
     Active Substance: QUETIAPINE
     Indication: Depression
     Dosage: UNK
     Route: 065
  18. REXULTI [Suspect]
     Active Substance: BREXPIPRAZOLE
     Indication: Depression
     Dosage: 0.25 MILLIGRAM
     Route: 065
  19. RISPERIDONE [Suspect]
     Active Substance: RISPERIDONE
     Indication: Depression
     Dosage: UNK
     Route: 065
  20. TRINTELLIX [Suspect]
     Active Substance: VORTIOXETINE HYDROBROMIDE
     Dosage: UNK
     Route: 065
  21. VENLAFAXINE HYDROCHLORIDE [Suspect]
     Active Substance: VENLAFAXINE HYDROCHLORIDE
     Indication: Depression
     Dosage: 225 MILLIGRAM
     Route: 065
  22. ZOLPIDEM [Suspect]
     Active Substance: ZOLPIDEM TARTRATE
     Indication: Depression
     Dosage: UNK
     Route: 065
  23. ZOPICLONE [Suspect]
     Active Substance: ZOPICLONE
     Dosage: UNK
     Route: 065

REACTIONS (5)
  - Adverse drug reaction [Unknown]
  - Condition aggravated [Unknown]
  - Drug ineffective [Unknown]
  - Suicidal ideation [Unknown]
  - Suicide attempt [Unknown]
